FAERS Safety Report 6559925-3 (Version None)
Quarter: 2010Q1

REPORT INFORMATION
  Report Type: 
  Country: None (occurrence: None)
  Receive Date: 20100129
  Receipt Date: 20091006
  Transmission Date: 20100710
  Serious: No
  Sender: FDA-Public Use
  Company Number: US-ABBOTT-09P-163-0597962-00

PATIENT
  Sex: Female
  Weight: 63.106 kg

DRUGS (8)
  1. HUMIRA [Suspect]
     Indication: RHEUMATOID ARTHRITIS
     Route: 058
     Dates: start: 20020101, end: 20070101
  2. HUMIRA [Suspect]
     Route: 058
     Dates: start: 20090803
  3. METHOTREXATE [Concomitant]
     Indication: DRUG USE FOR UNKNOWN INDICATION
  4. PREDNISONE [Concomitant]
     Indication: DRUG USE FOR UNKNOWN INDICATION
  5. THYROID MEDICATION [Concomitant]
     Indication: HYPOTHYROIDISM
  6. WELLBUTRIN [Concomitant]
     Indication: DRUG USE FOR UNKNOWN INDICATION
  7. CARBOLEVA [Concomitant]
     Indication: RESTLESS LEGS SYNDROME
  8. VITAMIN B COMPLEX CAP [Concomitant]
     Indication: DRUG USE FOR UNKNOWN INDICATION

REACTIONS (3)
  - DRUG INEFFECTIVE [None]
  - LACERATION [None]
  - WOUND INFECTION [None]
